FAERS Safety Report 9250656 (Version 1)
Quarter: 2013Q1

REPORT INFORMATION
  Report Type: Spontaneous
  Country: US (occurrence: None)
  Receive Date: 20130305
  Receipt Date: 20130305
  Transmission Date: 20140127
  Serious: Yes (Hospitalization, Other)
  Sender: FDA-Public Use
  Company Number: 163-21880-12042702

PATIENT
  Age: 71 Year
  Sex: Female

DRUGS (2)
  1. REVLIMID [Suspect]
     Indication: MYELODYSPLASTIC SYNDROME
     Route: 048
     Dates: start: 201106
  2. DACOGEN (DECITABINE) [Concomitant]

REACTIONS (4)
  - Haemoglobin decreased [None]
  - Thrombocytopenia [None]
  - Neutropenia [None]
  - Febrile neutropenia [None]
